FAERS Safety Report 8880170 (Version 2)
Quarter: 2012Q4

REPORT INFORMATION
  Report Type: 
  Country: US (occurrence: US)
  Receive Date: 20121101
  Receipt Date: 20121108
  Transmission Date: 20130627
  Serious: Yes (Other)
  Sender: FDA-Public Use
  Company Number: US-AMGEN-USASP2012061442

PATIENT
  Age: 60 Year
  Sex: Male
  Weight: 69.84 kg

DRUGS (5)
  1. NPLATE [Suspect]
     Indication: IDIOPATHIC THROMBOCYTOPENIC PURPURA
     Dosage: 698 mug, qwk
     Route: 058
     Dates: start: 20110602, end: 20121011
  2. RITUXAN [Concomitant]
     Indication: NON-HODGKIN^S LYMPHOMA
     Dosage: 698 mg, UNK
     Route: 042
     Dates: start: 20120606, end: 20120627
  3. FERAHEME [Concomitant]
     Indication: BLOOD IRON DECREASED
     Dosage: 510 mg, UNK
     Route: 042
     Dates: start: 20120606, end: 20120613
  4. TYLENOL /00020001/ [Concomitant]
     Dosage: 650 mg, UNK
     Route: 048
     Dates: start: 20120606, end: 20120627
  5. BENADRYL                           /00000402/ [Concomitant]
     Dosage: 50 mg, UNK
     Route: 042
     Dates: start: 20120606, end: 20120627

REACTIONS (1)
  - Therapeutic response decreased [Not Recovered/Not Resolved]
